FAERS Safety Report 8964566 (Version 1)
Quarter: 2012Q4

REPORT INFORMATION
  Report Type: Report from Study
  Country: CA (occurrence: CA)
  Receive Date: 20121214
  Receipt Date: 20121214
  Transmission Date: 20130627
  Serious: Yes (Hospitalization, Other)
  Sender: FDA-Public Use
  Company Number: CA-JNJFOC-20121203273

PATIENT
  Age: 67 None
  Sex: Male
  Weight: 99 kg

DRUGS (9)
  1. REMICADE [Suspect]
     Indication: CROHN^S DISEASE
     Route: 042
     Dates: start: 20120420
  2. PREDNISONE [Concomitant]
     Route: 065
  3. PANTOLOC [Concomitant]
     Route: 065
  4. HYDROMORPH CONTIN [Concomitant]
     Route: 065
  5. METOPROLOL [Concomitant]
     Route: 065
  6. AMLODIPINE [Concomitant]
     Route: 065
  7. RAMIPRIL [Concomitant]
     Route: 065
  8. CRESTOR [Concomitant]
     Route: 065
  9. ACETYL SALICYLIC ACID [Concomitant]
     Route: 065

REACTIONS (3)
  - Eye swelling [Not Recovered/Not Resolved]
  - Sialoadenitis [Not Recovered/Not Resolved]
  - Disorder of orbit [Not Recovered/Not Resolved]
